FAERS Safety Report 5286789-0 (Version None)
Quarter: 2007Q2

REPORT INFORMATION
  Report Type: 
  Country: None (occurrence: None)
  Receive Date: 20070404
  Receipt Date: 20070330
  Transmission Date: 20071010
  Serious: Yes (Death, Other)
  Sender: FDA-Public Use
  Company Number: 2006UW27839

PATIENT
  Age: 24939 Day
  Sex: Female
  Weight: 68.2 kg

DRUGS (7)
  1. SEROQUEL [Suspect]
     Indication: HALLUCINATION
     Route: 048
     Dates: start: 19980710, end: 20060601
  2. SEROQUEL [Suspect]
     Indication: DISTURBANCE IN ATTENTION
     Route: 048
     Dates: start: 19980710, end: 20060601
  3. SEROQUEL [Suspect]
     Indication: AGITATION
     Route: 048
     Dates: start: 19980710, end: 20060601
  4. GEODON [Concomitant]
  5. HALDOL [Concomitant]
  6. RISPERDAL [Concomitant]
  7. ZYPREXA [Concomitant]

REACTIONS (6)
  - ANKLE FRACTURE [None]
  - CLAVICLE FRACTURE [None]
  - DEATH [None]
  - DIABETES MELLITUS [None]
  - HIP FRACTURE [None]
  - TARDIVE DYSKINESIA [None]
